FAERS Safety Report 21760602 (Version 1)
Quarter: 2022Q4

REPORT INFORMATION
  Report Type: Spontaneous
  Country: KR (occurrence: KR)
  Receive Date: 20221221
  Receipt Date: 20221221
  Transmission Date: 20230112
  Serious: Yes (Hospitalization, Other)
  Sender: FDA-Public Use
  Company Number: KR-ELI_LILLY_AND_COMPANY-KR202212008605

PATIENT
  Age: 68 Year
  Sex: Female

DRUGS (2)
  1. TERIPARATIDE [Suspect]
     Active Substance: TERIPARATIDE
     Indication: Osteoporosis
     Dosage: UNK UNK, EACH MORNING
     Route: 065
     Dates: start: 20221112, end: 20221115
  2. TERIPARATIDE [Suspect]
     Active Substance: TERIPARATIDE
     Indication: Spinal fracture
     Dosage: UNK UNK, EACH MORNING
     Route: 065
     Dates: start: 20221213

REACTIONS (6)
  - Pneumonia [Recovered/Resolved]
  - Erythema [Unknown]
  - Dyspnoea [Unknown]
  - Hypersensitivity [Unknown]
  - Pyrexia [Unknown]
  - Incorrect product administration duration [Recovered/Resolved]

NARRATIVE: CASE EVENT DATE: 20220101
